FAERS Safety Report 4355123-2 (Version None)
Quarter: 2004Q2

REPORT INFORMATION
  Report Type: 
  Country: None (occurrence: None)
  Receive Date: 20040510
  Receipt Date: 20040428
  Transmission Date: 20050107
  Serious: Yes (Hospitalization)
  Sender: FDA-Public Use
  Company Number: DE-BRISTOL-MYERS SQUIBB COMPANY-12573838

PATIENT
  Age: 44 Year
  Sex: Female
  Weight: 60 kg

DRUGS (2)
  1. TAXOL [Suspect]
     Indication: OVARIAN CANCER
     Dosage: THERAPY DATES: 01 TO 22-MAR-2004
     Route: 042
     Dates: start: 20040322, end: 20040322
  2. CARBOPLATIN [Suspect]
     Indication: OVARIAN CANCER
     Dosage: THERAPY DATES: 01 TO 22-MAR-2004
     Route: 042
     Dates: start: 20040322, end: 20040322

REACTIONS (1)
  - ACUTE PSYCHOSIS [None]
